FAERS Safety Report 9709841 (Version 2)
Quarter: 2013Q4

REPORT INFORMATION
  Report Type: Spontaneous
  Country: US (occurrence: US)
  Receive Date: 20131126
  Receipt Date: 20131205
  Transmission Date: 20140711
  Serious: No
  Sender: FDA-Public Use
  Company Number: US-PFIZER INC-2013336007

PATIENT
  Age: 78 Year
  Sex: Female
  Weight: 53.06 kg

DRUGS (2)
  1. XELJANZ [Suspect]
     Indication: RHEUMATOID ARTHRITIS
     Dosage: UNK
     Dates: start: 201309, end: 20131119
  2. PLAVIX [Concomitant]
     Indication: CEREBROVASCULAR ACCIDENT
     Dosage: UNK
     Dates: start: 201212

REACTIONS (5)
  - Oral pain [Recovered/Resolved]
  - Nasopharyngitis [Recovered/Resolved]
  - Dry mouth [Recovered/Resolved]
  - Dysphagia [Unknown]
  - Oropharyngeal pain [Not Recovered/Not Resolved]
